FAERS Safety Report 18933293 (Version 4)
Quarter: 2021Q1

REPORT INFORMATION
  Report Type: Spontaneous
  Country: US (occurrence: US)
  Receive Date: 20210224
  Receipt Date: 20210323
  Transmission Date: 20210420
  Serious: Yes (Death, Other)
  Sender: FDA-Public Use
  Company Number: US-PFIZER INC-2021168958

PATIENT
  Age: 13 Month
  Sex: Female

DRUGS (4)
  1. IMMUNOGLOBULIN [IMMUNOGLOBULINS NOS] [Concomitant]
     Active Substance: IMMUNE GLOBULIN NOS
     Indication: COOMBS POSITIVE HAEMOLYTIC ANAEMIA
     Dosage: UNK
     Route: 042
  2. METHYLPREDNISOLONE. [Suspect]
     Active Substance: METHYLPREDNISOLONE
     Indication: LEUKOCYTOSIS
  3. METHYLPREDNISOLONE. [Suspect]
     Active Substance: METHYLPREDNISOLONE
     Indication: COOMBS POSITIVE HAEMOLYTIC ANAEMIA
     Dosage: 80 MG, DAILY (HIGH?DOSAGE)
  4. IMMUNOGLOBULIN [IMMUNOGLOBULINS NOS] [Concomitant]
     Active Substance: IMMUNE GLOBULIN NOS
     Indication: LEUKOCYTOSIS

REACTIONS (11)
  - Pneumonia [Unknown]
  - Rubella [Unknown]
  - Varicella zoster virus infection [Unknown]
  - Lymphopenia [Unknown]
  - Disseminated intravascular coagulation in newborn [Fatal]
  - Disseminated varicella zoster vaccine virus infection [Unknown]
  - Herpes virus infection [Fatal]
  - Hepatic failure [Fatal]
  - Hepatic infection [Unknown]
  - Mumps [Unknown]
  - Renal failure [Fatal]
